FAERS Safety Report 9023329 (Version 1)
Quarter: 2013Q1

REPORT INFORMATION
  Report Type: Spontaneous
  Country: US (occurrence: US)
  Receive Date: 20130119
  Receipt Date: 20130119
  Transmission Date: 20140127
  Serious: Yes (Death, Hospitalization, Other)
  Sender: FDA-Public Use
  Company Number: US-UCBSA-075336

PATIENT
  Age: 31 Year
  Sex: Female

DRUGS (7)
  1. ACETAMINOPHEN\HYDROCODONE [Suspect]
     Route: 048
  2. CYCLOBENZAPRINE [Suspect]
     Route: 048
  3. QUETIAPINE [Suspect]
     Route: 048
  4. ACETAMINOPHEN/BUTABITAL/CAFFEINE/CODEINE [Suspect]
     Route: 048
  5. TEMAZEPAM [Suspect]
     Route: 048
  6. ACETAMINOPHEN/OXYCODONE [Suspect]
     Route: 048
  7. LORATADINE [Suspect]
     Route: 048

REACTIONS (1)
  - Completed suicide [Fatal]
